FAERS Safety Report 8979302 (Version 1)
Quarter: 2012Q4

REPORT INFORMATION
  Report Type: 
  Country: US (occurrence: US)
  Receive Date: 20121221
  Receipt Date: 20121221
  Transmission Date: 20130627
  Serious: Yes (Other)
  Sender: FDA-Public Use
  Company Number: US-PFIZER INC-2012320811

PATIENT
  Age: 73 Year
  Sex: Female
  Weight: 67.12 kg

DRUGS (1)
  1. FIBERCON [Suspect]
     Indication: CONSTIPATION
     Dosage: UNK, 2x/day
     Dates: start: 201208

REACTIONS (2)
  - Urinary tract infection [Unknown]
  - Diarrhoea [Not Recovered/Not Resolved]
